FAERS Safety Report 15617539 (Version 3)
Quarter: 2018Q4

REPORT INFORMATION
  Report Type: Spontaneous
  Country: DE (occurrence: DE)
  Receive Date: 20181114
  Receipt Date: 20181207
  Transmission Date: 20190205
  Serious: Yes (Death, Hospitalization, Other)
  Sender: FDA-Public Use
  Company Number: PHHY2018DE150801

PATIENT
  Age: 19 Year
  Sex: Female

DRUGS (30)
  1. CYCLOPHOSPHAMIDE. [Suspect]
     Active Substance: CYCLOPHOSPHAMIDE
     Indication: AUTOIMMUNE HAEMOLYTIC ANAEMIA
     Route: 065
  2. ALEMTUZUMAB [Suspect]
     Active Substance: ALEMTUZUMAB
     Indication: IMMUNOSUPPRESSANT DRUG THERAPY
  3. IBRUTINIB [Suspect]
     Active Substance: IBRUTINIB
     Indication: COOMBS POSITIVE HAEMOLYTIC ANAEMIA
  4. METHYLPREDNISOLONE. [Suspect]
     Active Substance: METHYLPREDNISOLONE
     Indication: COOMBS POSITIVE HAEMOLYTIC ANAEMIA
  5. METHYLPREDNISOLONE. [Suspect]
     Active Substance: METHYLPREDNISOLONE
     Indication: IMMUNOSUPPRESSANT DRUG THERAPY
  6. CYCLOPHOSPHAMIDE. [Suspect]
     Active Substance: CYCLOPHOSPHAMIDE
     Indication: IMMUNOSUPPRESSANT DRUG THERAPY
  7. BORTEZOMIB. [Suspect]
     Active Substance: BORTEZOMIB
     Indication: COOMBS POSITIVE HAEMOLYTIC ANAEMIA
  8. SIROLIMUS. [Suspect]
     Active Substance: SIROLIMUS
     Indication: AUTOIMMUNE HAEMOLYTIC ANAEMIA
  9. IBRUTINIB [Suspect]
     Active Substance: IBRUTINIB
     Indication: IMMUNOSUPPRESSANT DRUG THERAPY
  10. DARATUMUMAB [Suspect]
     Active Substance: DARATUMUMAB
     Indication: AUTOIMMUNE HAEMOLYTIC ANAEMIA
     Dosage: 16 MG/KG, QW
     Route: 042
  11. ANTITHYMOCYTE IMMUNOGLOBULIN (RABBIT) [Suspect]
     Active Substance: LAPINE T-LYMPHOCYTE IMMUNE GLOBULIN
     Indication: IMMUNOSUPPRESSANT DRUG THERAPY
  12. RITUXIMAB. [Suspect]
     Active Substance: RITUXIMAB
     Indication: COOMBS POSITIVE HAEMOLYTIC ANAEMIA
  13. RITUXIMAB. [Suspect]
     Active Substance: RITUXIMAB
     Indication: IMMUNOSUPPRESSANT DRUG THERAPY
  14. METHYLPREDNISOLONE. [Suspect]
     Active Substance: METHYLPREDNISOLONE
     Indication: AUTOIMMUNE HAEMOLYTIC ANAEMIA
     Dosage: UNK
     Route: 065
  15. BORTEZOMIB. [Suspect]
     Active Substance: BORTEZOMIB
     Indication: AUTOIMMUNE HAEMOLYTIC ANAEMIA
     Dosage: 1.3 MG/M2, (4 DOSES)
     Route: 065
  16. IBRUTINIB [Suspect]
     Active Substance: IBRUTINIB
     Indication: AUTOIMMUNE HAEMOLYTIC ANAEMIA
     Route: 065
  17. ANTITHYMOCYTE IMMUNOGLOBULIN (RABBIT) [Suspect]
     Active Substance: LAPINE T-LYMPHOCYTE IMMUNE GLOBULIN
     Indication: AUTOIMMUNE HAEMOLYTIC ANAEMIA
     Route: 065
  18. SIROLIMUS. [Suspect]
     Active Substance: SIROLIMUS
     Indication: IMMUNOSUPPRESSANT DRUG THERAPY
  19. SIROLIMUS. [Suspect]
     Active Substance: SIROLIMUS
     Indication: COOMBS POSITIVE HAEMOLYTIC ANAEMIA
  20. CYCLOPHOSPHAMIDE. [Suspect]
     Active Substance: CYCLOPHOSPHAMIDE
     Indication: COOMBS POSITIVE HAEMOLYTIC ANAEMIA
  21. MYCOPHENOLATE MOFETIL. [Suspect]
     Active Substance: MYCOPHENOLATE MOFETIL
     Indication: AUTOIMMUNE HAEMOLYTIC ANAEMIA
     Route: 065
  22. MYCOPHENOLATE MOFETIL. [Suspect]
     Active Substance: MYCOPHENOLATE MOFETIL
     Indication: COOMBS POSITIVE HAEMOLYTIC ANAEMIA
  23. RITUXIMAB. [Suspect]
     Active Substance: RITUXIMAB
     Indication: AUTOIMMUNE HAEMOLYTIC ANAEMIA
     Dosage: 375 MG/M2,  (11 DOSES)
     Route: 065
  24. BORTEZOMIB. [Suspect]
     Active Substance: BORTEZOMIB
     Indication: IMMUNOSUPPRESSANT DRUG THERAPY
  25. MYCOPHENOLATE MOFETIL. [Suspect]
     Active Substance: MYCOPHENOLATE MOFETIL
     Indication: IMMUNOSUPPRESSANT DRUG THERAPY
  26. SIROLIMUS. [Suspect]
     Active Substance: SIROLIMUS
     Indication: AUTOIMMUNE HAEMOLYTIC ANAEMIA
     Route: 065
  27. ALEMTUZUMAB [Suspect]
     Active Substance: ALEMTUZUMAB
     Indication: AUTOIMMUNE HAEMOLYTIC ANAEMIA
     Route: 065
  28. ALEMTUZUMAB [Suspect]
     Active Substance: ALEMTUZUMAB
     Indication: COOMBS POSITIVE HAEMOLYTIC ANAEMIA
  29. ALEMTUZUMAB [Suspect]
     Active Substance: ALEMTUZUMAB
     Indication: AUTOIMMUNE HAEMOLYTIC ANAEMIA
  30. ANTITHYMOCYTE IMMUNOGLOBULIN (RABBIT) [Suspect]
     Active Substance: LAPINE T-LYMPHOCYTE IMMUNE GLOBULIN
     Indication: COOMBS POSITIVE HAEMOLYTIC ANAEMIA

REACTIONS (7)
  - Plasma cells decreased [Unknown]
  - Product use in unapproved indication [Unknown]
  - B-lymphocyte count decreased [Unknown]
  - Off label use [Unknown]
  - Autoimmune haemolytic anaemia [Fatal]
  - Drug ineffective [Fatal]
  - Disease recurrence [Fatal]
